FAERS Safety Report 9332116 (Version 1)
Quarter: 2013Q2

REPORT INFORMATION
  Report Type: Spontaneous
  Country: BR (occurrence: BR)
  Receive Date: 20130606
  Receipt Date: 20130606
  Transmission Date: 20140414
  Serious: Yes (Other)
  Sender: FDA-Public Use
  Company Number: BR-AMGEN-BRASP2013039344

PATIENT
  Age: 60 Year
  Sex: Female
  Weight: 75 kg

DRUGS (6)
  1. ENBREL [Suspect]
     Indication: RHEUMATOID ARTHRITIS
     Dosage: 25 MG, 2X/WEEK
     Route: 058
     Dates: start: 201104, end: 201304
  2. ENBREL [Suspect]
     Dosage: 25 MG, 2X/DAY
     Route: 058
     Dates: start: 201305, end: 201305
  3. ARAVA [Concomitant]
     Dosage: 20 MG, 1X/DAY
     Dates: start: 201104
  4. LOSARTAN [Concomitant]
     Indication: BLOOD PRESSURE
     Dosage: 50 MG, 2X/DAY
     Dates: start: 2004
  5. MODURETIC [Concomitant]
     Indication: DIURETIC THERAPY
     Dosage: [HYDROCHLOROTHIAZIDE 50MG] / [AMILORIDE HYDROCHLORIDE 5MG], 1X/DAY
  6. OMEPRAZOLE [Concomitant]
     Indication: GASTRITIS PROPHYLAXIS
     Dosage: 20 MG, 1X/DAY
     Dates: start: 2010

REACTIONS (3)
  - Skeletal injury [Unknown]
  - Postoperative wound infection [Unknown]
  - Paraesthesia [Unknown]
